FAERS Safety Report 7353173-5 (Version None)
Quarter: 2011Q1

REPORT INFORMATION
  Report Type: 
  Country: None (occurrence: None)
  Receive Date: 20110315
  Receipt Date: 20110302
  Transmission Date: 20110831
  Serious: Yes (Other)
  Sender: FDA-Public Use
  Company Number: US-MYLANLABS-2011S1004212

PATIENT
  Age: 53 Year
  Sex: Female

DRUGS (2)
  1. CLOZAPINE [Suspect]
  2. CLOZAPINE [Suspect]
     Dates: start: 20110201

REACTIONS (3)
  - GRANULOCYTOPENIA [None]
  - LYMPHOPENIA [None]
  - LEUKOPENIA [None]
